FAERS Safety Report 7783935-1 (Version None)
Quarter: 2011Q3

REPORT INFORMATION
  Report Type: 
  Country: None (occurrence: None)
  Receive Date: 20110928
  Receipt Date: 20110923
  Transmission Date: 20111222
  Serious: Yes (Other)
  Sender: FDA-Public Use
  Company Number: DE-ALLERGAN-1110628US

PATIENT
  Age: 70 Year
  Sex: Male

DRUGS (2)
  1. OZURDEX [Suspect]
     Indication: UVEITIS
  2. OZURDEX [Suspect]
     Indication: MACULAR OEDEMA
     Dosage: UNK
     Route: 031
     Dates: start: 20110805, end: 20110805

REACTIONS (1)
  - COMPLICATION OF DEVICE INSERTION [None]
